FAERS Safety Report 5945812-8 (Version None)
Quarter: 2008Q4

REPORT INFORMATION
  Report Type: 
  Country: None (occurrence: None)
  Receive Date: 20081104
  Receipt Date: 20081024
  Transmission Date: 20090506
  Serious: Yes (Hospitalization)
  Sender: FDA-Public Use
  Company Number: GXKR2008GB10208

PATIENT
  Age: 72 Year
  Sex: Female

DRUGS (6)
  1. METHYLPREDNISOLONE [Suspect]
     Indication: GLOMERULONEPHRITIS
  2. METHYLPREDNISOLONE [Suspect]
     Indication: WEGENER'S GRANULOMATOSIS
  3. PREDNISOLONE [Suspect]
     Indication: GLOMERULONEPHRITIS
     Dosage: 30 MG, QD, ORAL; 10 MG, QD, ORAL
     Route: 048
  4. PREDNISOLONE [Suspect]
     Indication: WEGENER'S GRANULOMATOSIS
     Dosage: 30 MG, QD, ORAL; 10 MG, QD, ORAL
     Route: 048
  5. CYCLOPHOSPHAMIDE [Suspect]
     Indication: GLOMERULONEPHRITIS
     Dosage: 500 MG, INTRAVENOUS
     Route: 042
  6. CYCLOPHOSPHAMIDE [Suspect]
     Indication: WEGENER'S GRANULOMATOSIS
     Dosage: 500 MG, INTRAVENOUS
     Route: 042

REACTIONS (5)
  - AMNESIA [None]
  - CRANIOTOMY [None]
  - DIFFUSE LARGE B-CELL LYMPHOMA [None]
  - DISORIENTATION [None]
  - DYSPHASIA [None]
